FAERS Safety Report 7743265-0 (Version None)
Quarter: 2011Q3

REPORT INFORMATION
  Report Type: 
  Country: None (occurrence: None)
  Receive Date: 20110901
  Receipt Date: 20110825
  Transmission Date: 20111222
  Serious: Yes (Hospitalization, Other)
  Sender: FDA-Public Use
  Company Number: 2009SP030810

PATIENT
  Age: 40 Year
  Sex: Female
  Weight: 55.7924 kg

DRUGS (16)
  1. MESALAMINE [Concomitant]
  2. DOXYCYCLINE [Concomitant]
  3. HYDROCODONE BITARTRATE AND ACETAMINOPHEN [Concomitant]
  4. DIFFERIN [Concomitant]
  5. CELEXA [Concomitant]
  6. AKNE-MYCIN [Concomitant]
  7. CANASA [Concomitant]
  8. OXYCODONE HCL AND ACETAMINOPHEN [Concomitant]
  9. WELLBUTRIN [Concomitant]
  10. NYSTATIN [Concomitant]
  11. ALPRAZOLAM [Concomitant]
  12. NUVARING [Suspect]
     Indication: CONTRACEPTION
     Dates: end: 20080324
  13. NUVARING [Suspect]
     Indication: CONTRACEPTION
     Dates: start: 20040901
  14. LEXAPRO [Concomitant]
  15. NUVARING [Suspect]
  16. PREDNISONE [Concomitant]

REACTIONS (33)
  - TRANSVERSE SINUS THROMBOSIS [None]
  - WEIGHT INCREASED [None]
  - SUBDURAL HAEMORRHAGE [None]
  - HAEMATOCHEZIA [None]
  - ASPARTATE AMINOTRANSFERASE INCREASED [None]
  - DYSPAREUNIA [None]
  - HERPES SIMPLEX [None]
  - INTRACRANIAL VENOUS SINUS THROMBOSIS [None]
  - NEOPLASM OF APPENDIX [None]
  - RED BLOOD CELLS CSF POSITIVE [None]
  - CSF PROTEIN INCREASED [None]
  - HEPATOTOXICITY [None]
  - TREATMENT NONCOMPLIANCE [None]
  - CEREBROVASCULAR DISORDER [None]
  - STREPTOCOCCUS TEST POSITIVE [None]
  - HIV INFECTION [None]
  - BILIARY DYSKINESIA [None]
  - VAGINAL DISCHARGE [None]
  - DEEP VEIN THROMBOSIS [None]
  - JUGULAR VEIN THROMBOSIS [None]
  - BREAST CYST [None]
  - SINUSITIS [None]
  - ABDOMINAL PAIN UPPER [None]
  - ALANINE AMINOTRANSFERASE INCREASED [None]
  - HEADACHE [None]
  - GARDNERELLA TEST POSITIVE [None]
  - VAGINITIS BACTERIAL [None]
  - NEURALGIA [None]
  - RED BLOOD CELL SEDIMENTATION RATE INCREASED [None]
  - FISTULA [None]
  - AORTIC ARTERIOSCLEROSIS [None]
  - HYPERCOAGULATION [None]
  - VENOUS RECANALISATION [None]
